FAERS Safety Report 10906009 (Version 1)
Quarter: 2015Q1

REPORT INFORMATION
  Report Type: Spontaneous
  Country: US (occurrence: US)
  Receive Date: 20150311
  Receipt Date: 20150311
  Transmission Date: 20150721
  Serious: No
  Sender: FDA-Public Use
  Company Number: US-GLAXOSMITHKLINE-US2015024390

PATIENT
  Age: 83 Year
  Sex: Male

DRUGS (10)
  1. ADVAIR DISKUS [Suspect]
     Active Substance: FLUTICASONE PROPIONATE\SALMETEROL XINAFOATE
     Indication: CHRONIC OBSTRUCTIVE PULMONARY DISEASE
  2. OMEPRAZOLE. [Concomitant]
     Active Substance: OMEPRAZOLE
  3. LOSARTAN [Concomitant]
     Active Substance: LOSARTAN
  4. COMBIVENT [Concomitant]
     Active Substance: ALBUTEROL SULFATE\IPRATROPIUM BROMIDE
  5. ASPIRIN. [Concomitant]
     Active Substance: ASPIRIN
  6. MONTELUKAST [Concomitant]
     Active Substance: MONTELUKAST SODIUM
  7. SPIRIVA [Concomitant]
     Active Substance: TIOTROPIUM BROMIDE MONOHYDRATE
  8. AMLODIPINE [Concomitant]
     Active Substance: AMLODIPINE BESYLATE
  9. MEGESTROL [Concomitant]
     Active Substance: MEGESTROL
  10. ADVAIR DISKUS [Suspect]
     Active Substance: FLUTICASONE PROPIONATE\SALMETEROL XINAFOATE
     Indication: ASTHMA
     Dosage: 2 PUFF(S), BID
     Route: 055

REACTIONS (2)
  - Overdose [Unknown]
  - Lung disorder [Unknown]

NARRATIVE: CASE EVENT DATE: 20150129
